FAERS Safety Report 7512300-7 (Version None)
Quarter: 2011Q2

REPORT INFORMATION
  Report Type: 
  Country: None (occurrence: None)
  Receive Date: 20110531
  Receipt Date: 20110518
  Transmission Date: 20111010
  Serious: Yes (Death, Hospitalization, Other)
  Sender: FDA-Public Use
  Company Number: PL-ACTELION-A-CH2011-46564

PATIENT
  Sex: Male
  Weight: 14.5 kg

DRUGS (4)
  1. LEVOTHYROXINE SODIUM [Concomitant]
  2. SPIRONOLACTONE [Concomitant]
  3. TRACLEER [Suspect]
     Indication: PULMONARY ARTERIAL HYPERTENSION
     Dosage: 25 MG, BID
     Route: 048
     Dates: start: 20100729, end: 20110318
  4. TRACLEER [Suspect]
     Dosage: 10 MG, BID
     Route: 048
     Dates: start: 20100629, end: 20100728

REACTIONS (9)
  - MUSCULOSKELETAL STIFFNESS [None]
  - APNOEA [None]
  - RESPIRATORY FAILURE [None]
  - HYPOTONIA [None]
  - PULMONARY ARTERIAL HYPERTENSION [None]
  - TONIC CONVULSION [None]
  - CONDITION AGGRAVATED [None]
  - HYPOXIA [None]
  - CYANOSIS [None]
